FAERS Safety Report 14453612 (Version 1)
Quarter: 2018Q1

REPORT INFORMATION
  Report Type: Spontaneous
  Country: CH (occurrence: CH)
  Receive Date: 20180129
  Receipt Date: 20180129
  Transmission Date: 20180509
  Serious: Yes (Hospitalization)
  Sender: FDA-Public Use
  Company Number: CH-TEVA-2018-CH-849993

PATIENT
  Age: 27 Year
  Sex: Male

DRUGS (4)
  1. BEXIN HUSTENSIRUP [Suspect]
     Active Substance: DEXTROMETHORPHAN HYDROBROMIDE
     Indication: COUGH
     Dosage: 25 MG/10 ML
     Route: 048
  2. IRFEN -600 LACTAB [Suspect]
     Active Substance: IBUPROFEN
     Route: 048
     Dates: start: 20161221
  3. PANADOL [Suspect]
     Active Substance: ACETAMINOPHEN
     Route: 048
  4. NEOCITRAN HUSTENSTILLER [Suspect]
     Active Substance: BUTAMIRATE CITRATE
     Indication: COUGH
     Dosage: 15 MG/10 ML
     Route: 048

REACTIONS (2)
  - Transaminases increased [Recovering/Resolving]
  - Blood creatine phosphokinase increased [Recovered/Resolved]

NARRATIVE: CASE EVENT DATE: 20170108
